FAERS Safety Report 8665990 (Version 2)
Quarter: 2013Q4

REPORT INFORMATION
  Report Type: Spontaneous
  Country: US (occurrence: US)
  Receive Date: 20120716
  Receipt Date: 20131101
  Transmission Date: 20140711
  Serious: No
  Sender: FDA-Public Use
  Company Number: US-009507513-1207USA002593

PATIENT
  Sex: Male

DRUGS (3)
  1. PEGINTRON [Suspect]
     Indication: HEPATITIS C
     Dosage: 150 MICROGRAM, QW
     Route: 058
     Dates: start: 20111117
  2. RIBAPAK [Suspect]
     Dosage: UNK
  3. TELAPREVIR [Suspect]
     Dosage: UNK UNK, QW

REACTIONS (1)
  - Depressed mood [Not Recovered/Not Resolved]
